FAERS Safety Report 4440518-9 (Version None)
Quarter: 2004Q3

REPORT INFORMATION
  Report Type: 
  Country: None (occurrence: None)
  Receive Date: 20040903
  Receipt Date: 20040826
  Transmission Date: 20050211
  Serious: Yes (Other)
  Sender: FDA-Public Use
  Company Number: US-JNJFOC-20040809620

PATIENT
  Sex: Female
  Weight: 99.79 kg

DRUGS (8)
  1. REMICADE [Suspect]
     Indication: ARTHRITIS
     Route: 042
  2. REMICADE [Suspect]
     Route: 042
  3. REMICADE [Suspect]
     Indication: CROHN'S DISEASE
     Dosage: DUE NEXT WEEK
     Route: 042
  4. PREDNISONE [Concomitant]
  5. PAIN MEDICATION [Concomitant]
  6. THYROID TAB [Concomitant]
  7. PLAQUENIL [Concomitant]
  8. MUSCLE RELAXANTS [Concomitant]

REACTIONS (2)
  - GLAUCOMA [None]
  - MUSCLE SPASMS [None]
